FAERS Safety Report 9160603 (Version 1)
Quarter: 2013Q1

REPORT INFORMATION
  Report Type: Spontaneous
  Country: DK (occurrence: None)
  Receive Date: 20130215
  Receipt Date: 20130215
  Transmission Date: 20140127
  Serious: Yes (Other)
  Sender: FDA-Public Use
  Company Number: 2013MA001124

PATIENT
  Age: 60 Year
  Sex: Female
  Weight: 76 kg

DRUGS (3)
  1. EPIRUBICIN HYDROCHLORIDE [Suspect]
     Route: 042
     Dates: start: 20121105
  2. CYCLOPHOSPHAMIDE [Suspect]
     Route: 042
     Dates: start: 20121105
  3. FLUOROURACIL (FLUOROURACIL) [Suspect]
     Route: 042
     Dates: start: 20121105

REACTIONS (2)
  - Neutropenia [None]
  - Gamma-glutamyltransferase increased [None]
